FAERS Safety Report 21951483 (Version 2)
Quarter: 2023Q2

REPORT INFORMATION
  Report Type: Spontaneous
  Country: US (occurrence: US)
  Receive Date: 20230203
  Receipt Date: 20230511
  Transmission Date: 20230722
  Serious: Yes (Other)
  Sender: FDA-Public Use
  Company Number: US-SA-SAC20230202001105

PATIENT
  Age: 40 Year
  Sex: Male

DRUGS (6)
  1. ELOCTATE [Suspect]
     Active Substance: EFMOROCTOCOG ALFA
     Indication: Haemorrhage prophylaxis
     Dosage: 5110 U
     Route: 042
  2. ELOCTATE [Suspect]
     Active Substance: EFMOROCTOCOG ALFA
     Indication: Haemorrhage prophylaxis
     Dosage: 5110 U
     Route: 042
  3. ELOCTATE [Suspect]
     Active Substance: EFMOROCTOCOG ALFA
     Indication: Haemorrhage
     Dosage: 4950 U (+/-10%), EVERY 5 DAYS FOR PROPHYLAXIS
     Route: 042
  4. ELOCTATE [Suspect]
     Active Substance: EFMOROCTOCOG ALFA
     Indication: Haemorrhage
     Dosage: 4950 U (+/-10%), EVERY 5 DAYS FOR PROPHYLAXIS
     Route: 042
  5. ELOCTATE [Suspect]
     Active Substance: EFMOROCTOCOG ALFA
     Dosage: 4950 U (+/-10%), EVERY 24 TO 48 HOURS AS NEEDED FOR EARLY JOINT OR SOFT TISSUE BLEEDING EPISODES AND
     Route: 042
  6. ELOCTATE [Suspect]
     Active Substance: EFMOROCTOCOG ALFA
     Dosage: 4950 U (+/-10%), EVERY 24 TO 48 HOURS AS NEEDED FOR EARLY JOINT OR SOFT TISSUE BLEEDING EPISODES AND
     Route: 042

REACTIONS (2)
  - Haemorrhage [Unknown]
  - Ankle operation [Unknown]

NARRATIVE: CASE EVENT DATE: 20230119
